FAERS Safety Report 8977133 (Version 1)
Quarter: 2012Q4

REPORT INFORMATION
  Report Type: 
  Country: US (occurrence: US)
  Receive Date: 20121220
  Receipt Date: 20121220
  Transmission Date: 20130627
  Serious: Yes (Hospitalization)
  Sender: FDA-Public Use
  Company Number: US-BIOGENIDEC-2012BI059761

PATIENT
  Age: 48 Year
  Sex: Female

DRUGS (2)
  1. AVONEX [Suspect]
     Indication: MULTIPLE SCLEROSIS
     Route: 030
     Dates: start: 2002
  2. AVONEX [Suspect]
     Indication: MULTIPLE SCLEROSIS
     Route: 030
     Dates: start: 20080723

REACTIONS (6)
  - Mitral valve repair [Recovered/Resolved]
  - Coronary artery bypass [Recovered/Resolved]
  - Cardiac disorder [Recovered/Resolved]
  - Diastolic dysfunction [Unknown]
  - Headache [Recovered/Resolved]
  - Nausea [Recovered/Resolved]
